FAERS Safety Report 7526923-2 (Version None)
Quarter: 2011Q2

REPORT INFORMATION
  Report Type: 
  Country: None (occurrence: None)
  Receive Date: 20110606
  Receipt Date: 20040204
  Transmission Date: 20111010
  Serious: Yes (Hospitalization, Other)
  Sender: FDA-Public Use
  Company Number: PHFR2004GB00568

PATIENT
  Sex: Male

DRUGS (10)
  1. CLOZAPINE [Suspect]
     Indication: SCHIZOPHRENIA
     Dosage: 200 MG/DAY
     Route: 048
     Dates: start: 20031112
  2. TEMAZEPAM [Concomitant]
     Indication: SLEEP DISORDER
     Dosage: 20 MG, QHS
     Route: 048
  3. CLOZAPINE [Suspect]
     Dosage: 400 MG/DAY
     Route: 048
     Dates: start: 20031219
  4. SULPIRIDE [Concomitant]
     Indication: SCHIZOPHRENIA
     Dosage: 200 MG, BID
     Route: 048
     Dates: start: 20040114
  5. DIAZEPAM [Concomitant]
     Indication: AGITATION
     Dosage: 15 MG/DAY
     Route: 048
  6. IMIPRAMINE [Concomitant]
     Indication: SALIVARY HYPERSECRETION
     Dosage: 25 MG/DAY
     Route: 048
     Dates: start: 20030114, end: 20030122
  7. CLOZAPINE [Suspect]
     Dosage: 350 MG/DAY
     Route: 048
  8. SIMVASTATIN [Concomitant]
     Indication: HYPERLIPIDAEMIA
     Dosage: 10 MG/DAY
     Route: 048
     Dates: start: 20031020
  9. PROCYCLIDINE HYDROCHLORIDE 2MG TAB [Concomitant]
     Indication: EXTRAPYRAMIDAL DISORDER
     Dosage: 15 MG/DAY
     Route: 048
  10. RANITIDINE [Concomitant]
     Indication: DYSPEPSIA
     Dosage: 300 MG/DAY
     Route: 048
     Dates: start: 20031221

REACTIONS (10)
  - PNEUMONIA [None]
  - PYREXIA [None]
  - RALES [None]
  - HEPATOMEGALY [None]
  - NEUTROPHIL COUNT INCREASED [None]
  - DYSPEPSIA [None]
  - SPLENOMEGALY [None]
  - WHITE BLOOD CELL COUNT INCREASED [None]
  - C-REACTIVE PROTEIN INCREASED [None]
  - MALAISE [None]
